FAERS Safety Report 13662217 (Version 1)
Quarter: 2017Q2

REPORT INFORMATION
  Report Type: Other
  Country: GB (occurrence: PT)
  Receive Date: 20170616
  Receipt Date: 20170616
  Transmission Date: 20170830
  Serious: Yes (Life-Threatening, Hospitalization, Other)
  Sender: FDA-Public Use
  Company Number: PT-INTERNATIONAL MEDICATION SYSTEMS, LIMITED-2022152

PATIENT
  Age: 53 Year
  Sex: Male

DRUGS (5)
  1. LIDOCAINE. [Suspect]
     Active Substance: LIDOCAINE
     Indication: ARRHYTHMIA
  2. MIDAZOLAM [Suspect]
     Active Substance: MIDAZOLAM HYDROCHLORIDE
  3. ESMOLOL [Suspect]
     Active Substance: ESMOLOL HYDROCHLORIDE
  4. MAGNESIUM [Suspect]
     Active Substance: MAGNESIUM
  5. AMIODARONE HYDROCHLORIDE. [Suspect]
     Active Substance: AMIODARONE HYDROCHLORIDE
     Route: 042

REACTIONS (1)
  - Drug ineffective [Unknown]
